FAERS Safety Report 8471264-2 (Version None)
Quarter: 2012Q2

REPORT INFORMATION
  Report Type: 
  Country: None (occurrence: None)
  Receive Date: 20120323
  Receipt Date: 20111103
  Transmission Date: 20120825
  Serious: Yes (Other)
  Sender: FDA-Public Use
  Company Number: 163-21880-11110753

PATIENT
  Age: 77 Year
  Sex: Female
  Weight: 85.2762 kg

DRUGS (11)
  1. LISINOPRIL [Concomitant]
  2. DEXAMETHASONE [Concomitant]
  3. POTASSIUM CHLORIDE [Concomitant]
  4. PLAVIX [Concomitant]
  5. VYTORIN [Concomitant]
  6. LENALIDOMIDE [Suspect]
     Indication: MULTIPLE MYELOMA
     Dosage: 5 MG, DAILY X 21/7, PO
     Route: 048
     Dates: start: 20111013
  7. CHLORTHALIDONE [Concomitant]
  8. AMLODIPINE [Concomitant]
  9. ETODOLAC [Concomitant]
  10. RANITIDINE HYDROCHLORIDE [Concomitant]
  11. GLIMEPIRIDE [Concomitant]

REACTIONS (2)
  - BLOOD PRESSURE INCREASED [None]
  - BLOOD GLUCOSE INCREASED [None]
